FAERS Safety Report 23123291 (Version 1)
Quarter: 2023Q4

REPORT INFORMATION
  Report Type: Spontaneous
  Country: US (occurrence: US)
  Receive Date: 20231030
  Receipt Date: 20231030
  Transmission Date: 20240110
  Serious: Yes (Hospitalization)
  Sender: FDA-Public Use
  Company Number: US-MELINTA THERAPEUTICS, LLC-US-MLNT-23-00593

PATIENT

DRUGS (2)
  1. KIMYRSA [Suspect]
     Active Substance: ORITAVANCIN DIPHOSPHATE
     Indication: Post procedural cellulitis
     Dosage: NOT PROVIDED, SINGLE
     Route: 041
     Dates: start: 20231016, end: 20231016
  2. KIMYRSA [Suspect]
     Active Substance: ORITAVANCIN DIPHOSPHATE
     Indication: Abscess drainage
     Dosage: NOT PROVIDED, SINGLE
     Route: 041

REACTIONS (3)
  - Sepsis [Recovered/Resolved]
  - Multiple use of single-use product [Recovered/Resolved]
  - Product administration error [Recovered/Resolved]
